FAERS Safety Report 6387183-1 (Version None)
Quarter: 2009Q4

REPORT INFORMATION
  Report Type: 
  Country: None (occurrence: None)
  Receive Date: 20091002
  Receipt Date: 20090923
  Transmission Date: 20100525
  Serious: Yes (Other)
  Sender: FDA-Public Use
  Company Number: GB-GILEAD-2009-0024117

PATIENT
  Age: 24 Year
  Sex: Male
  Weight: 58.5 kg

DRUGS (3)
  1. ATRIPLA [Suspect]
     Indication: HIV INFECTION
     Route: 048
     Dates: start: 20080908
  2. CALCIUM AND VITAMIN D [Concomitant]
     Route: 048
     Dates: start: 20090301
  3. COTRIM [Concomitant]
     Route: 048
     Dates: start: 20080317

REACTIONS (1)
  - ELECTROCARDIOGRAM PR SHORTENED [None]
